FAERS Safety Report 4311979-0 (Version None)
Quarter: 2004Q1

REPORT INFORMATION
  Report Type: 
  Country: None (occurrence: None)
  Receive Date: 20040305
  Receipt Date: 20030724
  Transmission Date: 20041129
  Serious: No
  Sender: FDA-Public Use
  Company Number: US-GLAXOSMITHKLINE-A0418820A

PATIENT
  Age: 69 Year
  Sex: Female

DRUGS (7)
  1. REQUIP [Suspect]
     Indication: PARKINSON'S DISEASE
     Dosage: 4MG THREE TIMES PER DAY
     Route: 048
     Dates: start: 20030601, end: 20030601
  2. REQUIP [Suspect]
     Dosage: 3MG TWICE PER DAY
     Route: 048
     Dates: start: 20030701, end: 20030701
  3. REQUIP [Suspect]
     Dosage: 3MG THREE TIMES PER DAY
     Route: 048
     Dates: start: 20030501, end: 20030601
  4. REQUIP [Suspect]
     Dosage: 3MG THREE TIMES PER DAY
     Route: 048
     Dates: start: 20030601
  5. PAXIL [Concomitant]
  6. XANAX [Concomitant]
  7. DIOVAN [Concomitant]

REACTIONS (2)
  - MOVEMENT DISORDER [None]
  - OEDEMA PERIPHERAL [None]
